FAERS Safety Report 8531301-3 (Version None)
Quarter: 2012Q3

REPORT INFORMATION
  Report Type: 
  Country: None (occurrence: None)
  Receive Date: 20120723
  Receipt Date: 20120711
  Transmission Date: 20120928
  Serious: Yes (Hospitalization, Other)
  Sender: FDA-Public Use
  Company Number: NL-MEDIMMUNE-MEDI-0013912

PATIENT
  Age: 7 Month
  Sex: Male

DRUGS (5)
  1. SYNAGIS [Suspect]
     Route: 030
     Dates: start: 20120312, end: 20120312
  2. SYNAGIS [Suspect]
     Route: 030
     Dates: start: 20120410, end: 20120410
  3. SYNAGIS [Suspect]
     Route: 030
     Dates: start: 20111104, end: 20111104
  4. SYNAGIS [Suspect]
     Route: 030
     Dates: start: 20111006, end: 20111006
  5. SYNAGIS [Suspect]
     Indication: PREMATURE BABY
     Route: 030
     Dates: start: 20110908, end: 20110908

REACTIONS (7)
  - DYSPNOEA [None]
  - RESPIRATORY RATE INCREASED [None]
  - RHINORRHOEA [None]
  - WHEEZING [None]
  - RESPIRATORY TRACT INFECTION VIRAL [None]
  - ENTERAL NUTRITION [None]
  - BRONCHIOLITIS [None]
